FAERS Safety Report 13639629 (Version 1)
Quarter: 2017Q2

REPORT INFORMATION
  Report Type: Spontaneous
  Country: US (occurrence: US)
  Receive Date: 20170609
  Receipt Date: 20170609
  Transmission Date: 20170830
  Serious: No
  Sender: FDA-Public Use
  Company Number: US-ROCHE-1179683

PATIENT
  Sex: Female

DRUGS (6)
  1. ZINC. [Concomitant]
     Active Substance: ZINC
  2. GLUCOSAMINE [Concomitant]
     Active Substance: GLUCOSAMINE
  3. URSODIOL. [Concomitant]
     Active Substance: URSODIOL
  4. SYNTHROID [Concomitant]
     Active Substance: LEVOTHYROXINE SODIUM
  5. CLONAZEPAM. [Suspect]
     Active Substance: CLONAZEPAM
     Route: 048
  6. CLONAZEPAM. [Suspect]
     Active Substance: CLONAZEPAM
     Indication: MYOCLONUS
     Route: 048

REACTIONS (7)
  - Crying [Recovered/Resolved]
  - Mood altered [Recovering/Resolving]
  - Insomnia [Recovering/Resolving]
  - Anxiety [Recovering/Resolving]
  - Depression [Recovering/Resolving]
  - Fatigue [Recovering/Resolving]
  - Nervousness [Recovering/Resolving]
